FAERS Safety Report 15344353 (Version 1)
Quarter: 2018Q3

REPORT INFORMATION
  Report Type: Spontaneous
  Country: US (occurrence: US)
  Receive Date: 20180903
  Receipt Date: 20180903
  Transmission Date: 20181010
  Serious: Yes (Other)
  Sender: FDA-Public Use
  Company Number: US-SA-2017SA254409

PATIENT
  Age: 58 Year
  Sex: Female
  Weight: 63 kg

DRUGS (9)
  1. NEOSAR [Concomitant]
     Active Substance: CYCLOPHOSPHAMIDE
  2. FEMARA [Concomitant]
     Active Substance: LETROZOLE
  3. TAXOTERE [Suspect]
     Active Substance: DOCETAXEL
     Dosage: 120 MG,Q3W
     Route: 042
     Dates: start: 20100930, end: 20100930
  4. ADRIAMYCIN [Concomitant]
     Active Substance: DOXORUBICIN HYDROCHLORIDE
  5. PROLIA [Concomitant]
     Active Substance: DENOSUMAB
  6. ELLENCE [Concomitant]
     Active Substance: EPIRUBICIN HYDROCHLORIDE
  7. EFUDEX [Concomitant]
     Active Substance: FLUOROURACIL
  8. CYCLOPHOSPHAMIDE. [Concomitant]
     Active Substance: CYCLOPHOSPHAMIDE
  9. TAXOTERE [Suspect]
     Active Substance: DOCETAXEL
     Indication: BREAST CANCER FEMALE
     Dosage: 120 MG,Q3W
     Route: 042
     Dates: start: 20100726, end: 20100726

REACTIONS (1)
  - Alopecia [Recovering/Resolving]

NARRATIVE: CASE EVENT DATE: 201103
